FAERS Safety Report 20311252 (Version 1)
Quarter: 2022Q1

REPORT INFORMATION
  Report Type: Spontaneous
  Country: CA (occurrence: CA)
  Receive Date: 20220107
  Receipt Date: 20220107
  Transmission Date: 20220423
  Serious: Yes (Life-Threatening, Hospitalization)
  Sender: FDA-Public Use
  Company Number: CA-PFIZER INC-202101885427

PATIENT
  Age: 7 Year
  Sex: Female
  Weight: 32 kg

DRUGS (7)
  1. LORAZEPAM [Suspect]
     Active Substance: LORAZEPAM
     Indication: Seizure
     Dosage: 3 MG, SINGLE
     Route: 042
  2. CLONAZEPAM [Concomitant]
     Active Substance: CLONAZEPAM
  3. FYCOMPA [Concomitant]
     Active Substance: PERAMPANEL
  4. MIDAZOLAM [Concomitant]
     Active Substance: MIDAZOLAM
  5. PHENYTOIN [Concomitant]
     Active Substance: PHENYTOIN
  6. ROCEPHIN [Concomitant]
     Active Substance: CEFTRIAXONE SODIUM
  7. TOPIRAMATE [Concomitant]
     Active Substance: TOPIRAMATE
     Route: 048

REACTIONS (3)
  - Hypotension [Recovered/Resolved]
  - Vasoplegia syndrome [Recovered/Resolved]
  - Off label use [Unknown]
